FAERS Safety Report 8622823-5 (Version None)
Quarter: 2012Q3

REPORT INFORMATION
  Report Type: 
  Country: None (occurrence: None)
  Receive Date: 20120827
  Receipt Date: 20120515
  Transmission Date: 20120928
  Serious: Yes (Death, Hospitalization, Congenital Anomaly, Other)
  Sender: FDA-Public Use
  Company Number: DE-RANBAXY-2012RR-56596

PATIENT
  Sex: Female
  Weight: 3 kg

DRUGS (9)
  1. PROGESTERONE [Concomitant]
     Dosage: 100 MG/DAY
     Route: 064
     Dates: start: 20100912, end: 20101114
  2. CETIRIZINE [Concomitant]
     Dosage: UNK
     Route: 064
  3. LEVOTHYROXINE SODIUM [Concomitant]
     Dosage: 100 UG/DAY
     Route: 064
     Dates: start: 20100913, end: 20110726
  4. FOLIC ACID [Concomitant]
     Dosage: 0.8 MG/DAY
     Route: 064
     Dates: start: 20100919, end: 20110404
  5. ALBUTEROL [Concomitant]
     Dosage: UNK
     Route: 064
     Dates: start: 20101220, end: 20101225
  6. EMSER NASENSPRAY [Concomitant]
     Dosage: UNK
     Route: 064
     Dates: start: 20101220, end: 20101226
  7. METFORMIN HCL [Suspect]
     Dosage: UNK
     Route: 064
  8. EBENOL [Concomitant]
     Dosage: UNK
     Route: 064
     Dates: start: 20101114, end: 20101117
  9. CLOTRIMAZOLE [Concomitant]
     Dosage: UNK
     Route: 064

REACTIONS (2)
  - HYPOPLASTIC LEFT HEART SYNDROME [None]
  - TURNER'S SYNDROME [None]
